FAERS Safety Report 7288878-8 (Version None)
Quarter: 2011Q1

REPORT INFORMATION
  Report Type: 
  Country: None (occurrence: None)
  Receive Date: 20110201
  Receipt Date: 20110126
  Transmission Date: 20110831
  Serious: Yes (Death)
  Sender: FDA-Public Use
  Company Number: 2010US004802

PATIENT
  Age: 55 Year
  Sex: Male

DRUGS (2)
  1. MYCAMINE [Suspect]
     Indication: PRODUCT USED FOR UNKNOWN INDICATION
     Dosage: 100 MG, UID/QD, IV NOS
     Route: 042
     Dates: start: 20100609, end: 20100609
  2. AMBISOME [Suspect]
     Indication: PRODUCT USED FOR UNKNOWN INDICATION
     Dosage: 400 MG, UID/QD, IV NOS
     Route: 042
     Dates: start: 20100611, end: 20100615

REACTIONS (1)
  - DEATH [None]
